FAERS Safety Report 6806612-X (Version None)
Quarter: 2010Q2

REPORT INFORMATION
  Report Type: 
  Country: None (occurrence: None)
  Receive Date: 20100629
  Receipt Date: 20080930
  Transmission Date: 20101027
  Serious: No
  Sender: FDA-Public Use
  Company Number: US-PFIZER INC-2008018184

PATIENT
  Sex: Female
  Weight: 65.9 kg

DRUGS (2)
  1. XANAX [Suspect]
     Indication: ANXIETY
     Route: 048
  2. TYLENOL [Concomitant]

REACTIONS (5)
  - ADVERSE EVENT [None]
  - DRUG INTOLERANCE [None]
  - FATIGUE [None]
  - FEELING ABNORMAL [None]
  - MALAISE [None]
